FAERS Safety Report 4736902-6 (Version None)
Quarter: 2005Q3

REPORT INFORMATION
  Report Type: 
  Country: None (occurrence: None)
  Receive Date: 20050808
  Receipt Date: 20050727
  Transmission Date: 20060218
  Serious: Yes (Disabling)
  Sender: FDA-Public Use
  Company Number: FR-GLAXOSMITHKLINE-B0389860A

PATIENT
  Sex: Male

DRUGS (2)
  1. ZEFFIX [Suspect]
     Indication: HEPATITIS B
     Route: 048
     Dates: start: 20040101
  2. ANTI-DEPRESSIVE MEDICATION [Concomitant]
     Route: 065

REACTIONS (2)
  - COLITIS COLLAGENOUS [None]
  - DIARRHOEA [None]
